FAERS Safety Report 8384442-8 (Version None)
Quarter: 2012Q2

REPORT INFORMATION
  Report Type: 
  Country: None (occurrence: None)
  Receive Date: 20120524
  Receipt Date: 20120518
  Transmission Date: 20120825
  Serious: Yes (Hospitalization)
  Sender: FDA-Public Use
  Company Number: US-GLAXOSMITHKLINE-A0978615A

PATIENT
  Age: 57 Year
  Sex: Female
  Weight: 55.9 kg

DRUGS (4)
  1. BORTEZOMIB [Suspect]
     Indication: AMYLOIDOSIS
     Dosage: 1.3MGM2 CYCLIC
     Route: 042
     Dates: start: 20120306, end: 20120406
  2. GRANULOCYTE COLONY STIMULATING FACTOR [Concomitant]
  3. MELPHALAN [Suspect]
     Indication: AMYLOIDOSIS
     Route: 042
     Dates: start: 20120424
  4. DEXAMETHASONE [Suspect]
     Indication: AMYLOIDOSIS
     Dosage: 20MG CYCLIC
     Route: 042
     Dates: start: 20120306, end: 20120406

REACTIONS (3)
  - NEUTROPENIA [None]
  - ASTHENIA [None]
  - RETCHING [None]
